FAERS Safety Report 19217837 (Version 8)
Quarter: 2021Q3

REPORT INFORMATION
  Report Type: Spontaneous
  Country: US (occurrence: US)
  Receive Date: 20210505
  Receipt Date: 20210915
  Transmission Date: 20211014
  Serious: Yes (Other)
  Sender: FDA-Public Use
  Company Number: US-BAYER-2021-135569

PATIENT
  Age: 39 Year
  Sex: Male

DRUGS (3)
  1. KOGENATE FS [Suspect]
     Active Substance: ANTIHEMOPHILIC FACTOR, HUMAN RECOMBINANT
     Dosage: UNK; HAS BEEN INFUSING TWICE A WEEK FOR PHYSICAL THERAPY
     Route: 042
     Dates: start: 20210722
  2. KOGENATE FS [Suspect]
     Active Substance: ANTIHEMOPHILIC FACTOR, HUMAN RECOMBINANT
     Dosage: 1 DF, ONCE; INFUSED FOR KNEE SWELLING
     Route: 042
     Dates: start: 20210806
  3. KOGENATE FS [Suspect]
     Active Substance: ANTIHEMOPHILIC FACTOR, HUMAN RECOMBINANT
     Dosage: 2000 U
     Route: 042

REACTIONS (2)
  - Knee arthroplasty [Recovered/Resolved]
  - Joint swelling [None]

NARRATIVE: CASE EVENT DATE: 20210325
